FAERS Safety Report 8086842-2 (Version None)
Quarter: 2012Q1

REPORT INFORMATION
  Report Type: 
  Country: None (occurrence: None)
  Receive Date: 20120128
  Receipt Date: 20110517
  Transmission Date: 20120608
  Serious: No
  Sender: FDA-Public Use
  Company Number: US-ABBOTT-11P-163-0727064-00

PATIENT
  Sex: Female

DRUGS (2)
  1. HUMIRA [Suspect]
     Indication: PRODUCT USED FOR UNKNOWN INDICATION
     Dates: start: 20070101
  2. HUMIRA [Suspect]

REACTIONS (5)
  - OEDEMA PERIPHERAL [None]
  - MYALGIA [None]
  - JOINT SWELLING [None]
  - DIZZINESS [None]
  - NEURALGIA [None]
